FAERS Safety Report 8305650-8 (Version None)
Quarter: 2012Q2

REPORT INFORMATION
  Report Type: 
  Country: None (occurrence: None)
  Receive Date: 20120423
  Receipt Date: 20120417
  Transmission Date: 20120825
  Serious: Yes (Other)
  Sender: FDA-Public Use
  Company Number: JP-PFIZER INC-2012067580

PATIENT
  Age: 64 Year
  Sex: Female

DRUGS (4)
  1. BASEN [Concomitant]
     Indication: DIABETES MELLITUS
     Dosage: UNK
     Route: 048
  2. INSULIN [Concomitant]
     Indication: DIABETES MELLITUS
     Dosage: UNK
     Dates: start: 20010101
  3. LYRICA [Suspect]
     Indication: DIABETIC NEUROPATHY
     Dosage: 75 MG, 1X/DAY AT BED TIME
     Route: 048
     Dates: start: 20111228, end: 20120222
  4. KINEDAK [Concomitant]
     Indication: DIABETIC NEUROPATHY
     Dosage: UNK
     Route: 048

REACTIONS (3)
  - BLOOD GLUCOSE INCREASED [None]
  - GLYCOSYLATED HAEMOGLOBIN INCREASED [None]
  - WEIGHT INCREASED [None]
